FAERS Safety Report 7313877-7 (Version None)
Quarter: 2011Q1

REPORT INFORMATION
  Report Type: 
  Country: None (occurrence: None)
  Receive Date: 20110217
  Receipt Date: 20110217
  Transmission Date: 20110831
  Serious: Yes (Life-Threatening)
  Sender: FDA-Public Use
  Company Number: None

PATIENT
  Sex: Male
  Weight: 88.4514 kg

DRUGS (1)
  1. LIDOCAINE 2% [Suspect]
     Indication: OROPHARYNGEAL PAIN
     Dosage: 5ML- GARGLE EVERY 4 HOURS PO
     Route: 048
     Dates: start: 20110214, end: 20110214

REACTIONS (5)
  - PYREXIA [None]
  - SWOLLEN TONGUE [None]
  - DYSPHAGIA [None]
  - PHARYNGEAL OEDEMA [None]
  - SPEECH DISORDER [None]
